FAERS Safety Report 25262944 (Version 1)
Quarter: 2025Q2

REPORT INFORMATION
  Report Type: Spontaneous
  Country: US (occurrence: US)
  Receive Date: 20250502
  Receipt Date: 20250502
  Transmission Date: 20250717
  Serious: No
  Sender: NOVARTIS
  Company Number: US-SANDOZ-SDZ2025US027287

PATIENT
  Age: 28 Year
  Sex: Male

DRUGS (3)
  1. METHOTREXATE [Suspect]
     Active Substance: METHOTREXATE
     Indication: Erythrodermic psoriasis
     Route: 065
  2. CYCLOSPORINE [Suspect]
     Active Substance: CYCLOSPORINE
     Indication: Erythrodermic psoriasis
     Route: 065
  3. APREMILAST [Suspect]
     Active Substance: APREMILAST
     Indication: Erythrodermic psoriasis
     Route: 065

REACTIONS (3)
  - Erythrodermic psoriasis [Unknown]
  - Condition aggravated [Unknown]
  - Therapy non-responder [Unknown]
